FAERS Safety Report 5586845-3 (Version None)
Quarter: 2008Q1

REPORT INFORMATION
  Report Type: 
  Country: None (occurrence: None)
  Receive Date: 20080110
  Receipt Date: 20071227
  Transmission Date: 20080703
  Serious: Yes (Other)
  Sender: FDA-Public Use
  Company Number: CA-PURDUE-CAN_2007_0000393

PATIENT
  Age: 58 Year
  Sex: Male

DRUGS (1)
  1. OXYCONTIN [Suspect]
     Indication: PAIN
     Dosage: 80 MG, 8-10 TIMES PER DAY
     Route: 048
     Dates: start: 19980101, end: 20020101

REACTIONS (3)
  - DEPENDENCE [None]
  - MYOCARDIAL INFARCTION [None]
  - WITHDRAWAL SYNDROME [None]
